FAERS Safety Report 6474838-3 (Version None)
Quarter: 2009Q4

REPORT INFORMATION
  Report Type: 
  Country: None (occurrence: None)
  Receive Date: 20091204
  Receipt Date: 20090212
  Transmission Date: 20100525
  Serious: Yes (Hospitalization)
  Sender: FDA-Public Use
  Company Number: US-ELI_LILLY_AND_COMPANY-US200902002922

PATIENT
  Sex: Female

DRUGS (3)
  1. EVISTA [Suspect]
     Dosage: UNK, UNKNOWN
     Route: 065
     Dates: start: 20040101
  2. WARFARIN SODIUM [Concomitant]
     Indication: BLOOD DISORDER
     Dosage: UNK, UNKNOWN
     Route: 065
  3. IMDUR [Concomitant]
     Indication: CARDIAC DISORDER
     Dosage: UNK, UNKNOWN
     Route: 065

REACTIONS (9)
  - ANGIOGRAM [None]
  - ANGIOPLASTY [None]
  - COUGH [None]
  - DEPRESSED MOOD [None]
  - DYSPNOEA [None]
  - IMPAIRED DRIVING ABILITY [None]
  - SURGERY [None]
  - SUTURE REMOVAL [None]
  - SUTURE RUPTURE [None]
